FAERS Safety Report 6645113-9 (Version None)
Quarter: 2010Q1

REPORT INFORMATION
  Report Type: 
  Country: None (occurrence: None)
  Receive Date: 20100322
  Receipt Date: 20100310
  Transmission Date: 20100710
  Serious: Yes (Other)
  Sender: FDA-Public Use
  Company Number: US-PFIZER INC-2010013291

PATIENT
  Sex: Male
  Weight: 74.389 kg

DRUGS (1)
  1. CHANTIX [Suspect]
     Indication: TOBACCO USER
     Dosage: UNK
     Route: 048
     Dates: start: 20080101, end: 20090301

REACTIONS (3)
  - BLOOD CHOLESTEROL INCREASED [None]
  - HERNIA [None]
  - TESTICULAR PAIN [None]
